FAERS Safety Report 10314335 (Version 2)
Quarter: 2014Q3

REPORT INFORMATION
  Report Type: Report from Study
  Country: KR (occurrence: KR)
  Receive Date: 20140718
  Receipt Date: 20140807
  Transmission Date: 20150326
  Serious: Yes (Hospitalization)
  Sender: FDA-Public Use
  Company Number: KR-GLAXOSMITHKLINE-B1014449A

PATIENT
  Age: 35 Year
  Sex: Male
  Weight: 81.9 kg

DRUGS (1)
  1. PAZOPANIB [Suspect]
     Active Substance: PAZOPANIB
     Indication: ALVEOLAR SOFT PART SARCOMA METASTATIC
     Dosage: 800MG PER DAY
     Route: 048
     Dates: start: 20140626

REACTIONS (1)
  - Pyrexia [Recovered/Resolved]

NARRATIVE: CASE EVENT DATE: 20140707
